FAERS Safety Report 24867999 (Version 1)
Quarter: 2025Q1

REPORT INFORMATION
  Report Type: Spontaneous
  Country: US (occurrence: US)
  Receive Date: 20250121
  Receipt Date: 20250121
  Transmission Date: 20250409
  Serious: Yes (Other)
  Sender: PFIZER
  Company Number: US-PFIZER INC-202500011066

PATIENT
  Age: 49 Year
  Sex: Male
  Weight: 114.76 kg

DRUGS (1)
  1. LORBRENA [Suspect]
     Active Substance: LORLATINIB
     Indication: Lung neoplasm malignant
     Dosage: 100 MG, 1X/DAY
     Dates: start: 2018

REACTIONS (2)
  - Tracheostomy [Unknown]
  - Speech disorder [Unknown]

NARRATIVE: CASE EVENT DATE: 20210101
